FAERS Safety Report 5957339-8 (Version None)
Quarter: 2008Q4

REPORT INFORMATION
  Report Type: 
  Country: None (occurrence: None)
  Receive Date: 20081114
  Receipt Date: 20081028
  Transmission Date: 20090506
  Serious: Yes (Life-Threatening, Other)
  Sender: FDA-Public Use
  Company Number: 2008GB0254

PATIENT
  Sex: Male
  Weight: 6.6 kg

DRUGS (5)
  1. ORFADIN [Suspect]
     Indication: TYROSINAEMIA
     Dosage: 4 MG, ORAL
     Route: 048
     Dates: start: 20080130, end: 20080602
  2. CALCIUM SANDOZ (CALCIUM) [Concomitant]
  3. VITAMIN A (NATURAL) CAP [Concomitant]
  4. VITAMIN K TAB [Concomitant]
  5. SPIRONOLACTONE [Concomitant]

REACTIONS (5)
  - DRUG INEFFECTIVE [None]
  - HEPATIC CIRRHOSIS [None]
  - HEPATIC FAILURE [None]
  - HEPATIC NEOPLASM [None]
  - LIVER TRANSPLANT [None]
